FAERS Safety Report 4530722-3 (Version None)
Quarter: 2004Q4

REPORT INFORMATION
  Report Type: 
  Country: None (occurrence: None)
  Receive Date: 20041217
  Receipt Date: 20041207
  Transmission Date: 20050328
  Serious: Yes (Other)
  Sender: FDA-Public Use
  Company Number: GB-GLAXOSMITHKLINE-B0359875A

PATIENT
  Sex: Male

DRUGS (6)
  1. AVANDIA [Suspect]
     Dosage: 8MG IN THE MORNING
  2. ASPIRIN [Concomitant]
     Dosage: 75MG IN THE MORNING
  3. ATORVASTATIN [Concomitant]
     Dosage: 40MG AT NIGHT
  4. BEZAFIBRATE [Concomitant]
     Dosage: 400MG IN THE MORNING
  5. LEVOTHYROXINE SODIUM [Concomitant]
     Dosage: 125MCG IN THE MORNING
  6. METFORMIN HCL [Concomitant]
     Dosage: 1G TWICE PER DAY

REACTIONS (9)
  - AGGRESSION [None]
  - AMNESIA [None]
  - DYSKINESIA [None]
  - FATIGUE [None]
  - HYPOAESTHESIA [None]
  - LETHARGY [None]
  - MYALGIA [None]
  - PAIN [None]
  - RESTLESS LEGS SYNDROME [None]
